FAERS Safety Report 21402318 (Version 1)
Quarter: 2022Q4

REPORT INFORMATION
  Report Type: Spontaneous
  Country: ES (occurrence: ES)
  Receive Date: 20221003
  Receipt Date: 20221003
  Transmission Date: 20230113
  Serious: Yes (Hospitalization)
  Sender: FDA-Public Use
  Company Number: ES-KYOWAKIRIN-2018BKK001419

PATIENT
  Age: 55 Year
  Sex: Female

DRUGS (31)
  1. PEMETREXED [Suspect]
     Active Substance: PEMETREXED
     Indication: Non-small cell lung cancer metastatic
     Dosage: UNK UNK, UNKNOWN
     Route: 065
     Dates: start: 201702, end: 2017
  2. CISPLATIN [Suspect]
     Active Substance: CISPLATIN
     Indication: Non-small cell lung cancer metastatic
     Dosage: UNK UNK, UNKNOWN
     Route: 065
     Dates: start: 201702, end: 2017
  3. FENTANYL [Suspect]
     Active Substance: FENTANYL
     Indication: Breakthrough pain
     Dosage: 150 UG, OTHER (EVERY 72 H)
     Route: 065
     Dates: start: 201711
  4. FENTANYL [Suspect]
     Active Substance: FENTANYL
     Indication: Breakthrough pain
     Dosage: 400 UG, PRN (2 IN THE MORNING AND 1 OR 2 IN THE EVENING/NIGHT)
     Route: 065
     Dates: start: 2017
  5. FENTANYL [Suspect]
     Active Substance: FENTANYL
     Dosage: 200 UG, UNKNOWN
     Route: 065
     Dates: start: 201702
  6. FENTANYL [Suspect]
     Active Substance: FENTANYL
     Dosage: UNK UNK, UNKNOWN (UPTO 600MCG)
     Route: 065
     Dates: start: 201711
  7. FENTANYL [Suspect]
     Active Substance: FENTANYL
     Dosage: 400 UG, UNKNOWN (PER DOSE)
     Route: 065
     Dates: start: 201711
  8. FENTANYL [Suspect]
     Active Substance: FENTANYL
     Dosage: 25 UG, EVERY HOUR
     Route: 065
     Dates: start: 201702
  9. MORPHINE SULFATE [Suspect]
     Active Substance: MORPHINE SULFATE
     Indication: Pain
     Dosage: UNK UNK, UNKNOWN (CONTINUOUS INFUSION PUMP)
     Route: 065
  10. MORPHINE SULFATE [Suspect]
     Active Substance: MORPHINE SULFATE
     Dosage: 200 MG, BID
     Route: 065
     Dates: start: 201711, end: 201711
  11. MORPHINE SULFATE [Suspect]
     Active Substance: MORPHINE SULFATE
     Dosage: 200 MG, EACH MORNING
     Route: 065
     Dates: start: 201711, end: 201711
  12. MORPHINE SULFATE [Suspect]
     Active Substance: MORPHINE SULFATE
     Dosage: 160 MG, EACH EVENING
     Route: 065
     Dates: start: 201711, end: 201711
  13. MORPHINE SULFATE [Suspect]
     Active Substance: MORPHINE SULFATE
     Dosage: 160 MG, BID
     Route: 065
     Dates: start: 201711, end: 201711
  14. MORPHINE SULFATE [Suspect]
     Active Substance: MORPHINE SULFATE
     Dosage: 300 MG, BID
     Route: 065
     Dates: start: 201711
  15. MORPHINE SULFATE [Suspect]
     Active Substance: MORPHINE SULFATE
     Dosage: 260 MG, BID
     Route: 065
     Dates: start: 201711, end: 201711
  16. MORPHINE SULFATE [Suspect]
     Active Substance: MORPHINE SULFATE
     Dosage: 30 MG, PRN (IF FENTANYL WAS INSUFFICIENT)
     Route: 065
     Dates: start: 201711
  17. MORPHINE SULFATE [Suspect]
     Active Substance: MORPHINE SULFATE
     Dosage: 20 MG, PRN (EVERY 4 HOURS IF SHE PRESENTED BREAKTHROUGH PAIN)
     Route: 065
     Dates: start: 201711
  18. MORPHINE SULFATE [Suspect]
     Active Substance: MORPHINE SULFATE
     Dosage: 20 MG, UNKNOWN (MORE THAN 5 DOSES OF 20 MG PER DAY)
     Route: 065
     Dates: start: 201711
  19. MORPHINE SULFATE [Suspect]
     Active Substance: MORPHINE SULFATE
     Dosage: 5 MG, UNKNOWN
     Route: 065
     Dates: start: 2017, end: 2017
  20. PEMBROLIZUMAB [Suspect]
     Active Substance: PEMBROLIZUMAB
     Indication: Non-small cell lung cancer metastatic
     Dosage: UNK UNK, UNKNOWN
     Route: 065
     Dates: start: 2017
  21. ATEZOLIZUMAB [Suspect]
     Active Substance: ATEZOLIZUMAB
     Indication: Non-small cell lung cancer metastatic
     Dosage: UNK UNK, UNKNOWN
     Route: 065
     Dates: start: 2017
  22. CARBOPLATIN [Suspect]
     Active Substance: CARBOPLATIN
     Indication: Non-small cell lung cancer metastatic
     Dosage: UNK UNK, UNKNOWN
     Route: 065
     Dates: start: 201711
  23. VINORELBINE [Suspect]
     Active Substance: VINORELBINE TARTRATE
     Indication: Non-small cell lung cancer metastatic
     Dosage: UNK UNK, UNKNOWN
     Route: 065
     Dates: start: 201711
  24. IBUPROFEN [Concomitant]
     Active Substance: IBUPROFEN
     Indication: Pain
     Dosage: 600 MG, Q8H
     Dates: start: 201711
  25. PREGABALIN [Concomitant]
     Active Substance: PREGABALIN
     Indication: Pain management
     Dosage: 300 MG, BID (Q12H)
     Dates: start: 201711
  26. OMEPRAZOLE [Concomitant]
     Active Substance: OMEPRAZOLE
     Indication: Product used for unknown indication
     Dosage: 20 MG, DAILY
     Dates: start: 201711
  27. METAMIZOLE SODIUM [Concomitant]
     Active Substance: METAMIZOLE SODIUM
     Indication: Product used for unknown indication
     Dosage: 1.15 G, EVERY 8 HRS
     Dates: end: 201711
  28. BROMAZEPAM [Concomitant]
     Active Substance: BROMAZEPAM
     Indication: Product used for unknown indication
     Dosage: 1.5 MG, DAILY
     Dates: start: 201711
  29. GRANISETRON [Concomitant]
     Active Substance: GRANISETRON
     Indication: Product used for unknown indication
     Dosage: 1 MG, BID
     Dates: start: 201711
  30. MAGNESIUM HYDROXIDE [Concomitant]
     Active Substance: MAGNESIUM HYDROXIDE
     Indication: Product used for unknown indication
     Dosage: UNK UNK, UNKNOWN (BETWEEN 1 AND 3 SACHETS PER DAY)
     Dates: start: 201711
  31. OLANZAPINE [Concomitant]
     Active Substance: OLANZAPINE
     Indication: Pruritus
     Dosage: UNKNOWN
     Dates: start: 2017

REACTIONS (9)
  - Cognitive disorder [Unknown]
  - Anxiety [Unknown]
  - Skin plaque [Unknown]
  - Dry mouth [Unknown]
  - Insomnia [Unknown]
  - Pneumonitis [Unknown]
  - Constipation [Unknown]
  - Oedema [Unknown]
  - Nausea [Unknown]

NARRATIVE: CASE EVENT DATE: 20170101
